FAERS Safety Report 14782323 (Version 1)
Quarter: 2018Q2

REPORT INFORMATION
  Report Type: Spontaneous
  Country: FR (occurrence: FR)
  Receive Date: 20180420
  Receipt Date: 20180420
  Transmission Date: 20180711
  Serious: Yes (Other)
  Sender: FDA-Public Use
  Company Number: FR-MERCK KGAA-2046122

PATIENT
  Age: 56 Year
  Sex: Female

DRUGS (1)
  1. NOVOTHYROX [Suspect]
     Active Substance: LEVOTHYROXINE SODIUM
     Indication: PRODUCT USED FOR UNKNOWN INDICATION
     Dates: start: 201705

REACTIONS (8)
  - Gait disturbance [None]
  - Suicidal ideation [None]
  - Blood thyroid stimulating hormone decreased [None]
  - Loss of personal independence in daily activities [None]
  - Arthralgia [None]
  - Malaise [None]
  - Mood swings [None]
  - Poor quality sleep [None]

NARRATIVE: CASE EVENT DATE: 2017
